FAERS Safety Report 8514000 (Version 3)
Quarter: 2012Q4

REPORT INFORMATION
  Report Type: 
  Country: DE (occurrence: DE)
  Receive Date: 20120416
  Receipt Date: 20120928
  Transmission Date: 20130627
  Serious: Yes (Death, Hospitalization, Other)
  Sender: FDA-Public Use
  Company Number: DE-RANBAXY-2012RR-55363

PATIENT
  Age: 48 Year
  Sex: Female

DRUGS (3)
  1. OLANZAPINE [Suspect]
     Indication: SCHIZOPHRENIA, CATATONIC TYPE
     Dosage: 10 mg, single
     Route: 065
  2. LORAZEPAM [Interacting]
     Indication: PRODUCT USED FOR UNKNOWN INDICATION
     Dosage: 4.5 mg
     Route: 048
  3. HALOPERIDOL [Concomitant]
     Indication: SCHIZOPHRENIA, CATATONIC TYPE
     Dosage: 5 mg/ day
     Route: 065

REACTIONS (2)
  - Hypothermia [Recovered/Resolved]
  - Drug interaction [Recovered/Resolved]
